FAERS Safety Report 6310724-7 (Version None)
Quarter: 2009Q3

REPORT INFORMATION
  Report Type: 
  Country: None (occurrence: None)
  Receive Date: 20090811
  Receipt Date: 20090803
  Transmission Date: 20100115
  Serious: Yes (Other)
  Sender: FDA-Public Use
  Company Number: 2008JP002237

PATIENT
  Age: 52 Year
  Sex: Male

DRUGS (10)
  1. TACROLIMUS [Suspect]
     Indication: LUPUS NEPHRITIS
     Dosage: 3 MG, ORAL
     Route: 048
     Dates: start: 20070423, end: 20080728
  2. PREDNISOLONE [Concomitant]
  3. GASTER (FAMOTIDINE) ORODISPERSIBLE CR TABLET, UNKNOWN [Concomitant]
  4. SELBEX (TEPRENONE) PER ORAL NOS [Concomitant]
  5. BONALON (ALENDROANTE SODIUM) PER ORAL NOS [Concomitant]
  6. FOSAMAC (ALENDRONATE SODIUM) PER ORAL NOS [Concomitant]
  7. PERSANTIN-L (DIPYRIDAMOLE) PER ORAL NOS [Concomitant]
  8. PLETAL [Concomitant]
  9. METHYCOBAL (MECOBALAMIN) PER ORAL NOS [Concomitant]
  10. MUCOSOLVAN (AMBROXOL HYDROCHLORIDE) PER ORAL NOS [Concomitant]

REACTIONS (4)
  - BLOOD CREATININE INCREASED [None]
  - BLOOD UREA INCREASED [None]
  - MYELODYSPLASTIC SYNDROME [None]
  - RENAL IMPAIRMENT [None]
